FAERS Safety Report 10695249 (Version 3)
Quarter: 2015Q1

REPORT INFORMATION
  Report Type: Spontaneous
  Country: IT (occurrence: IT)
  Receive Date: 20150107
  Receipt Date: 20150202
  Transmission Date: 20150721
  Serious: No
  Sender: FDA-Public Use
  Company Number: IT-SA-2015SA000714

PATIENT
  Age: 48 Year
  Sex: Female

DRUGS (9)
  1. LYRICA [Concomitant]
     Active Substance: PREGABALIN
     Dosage: STRENGTH: 50 MG
  2. PARACODINA [Concomitant]
     Active Substance: ASPIRIN\CAFFEINE\DIHYDROCODEINE BITARTRATE
  3. ANTRA [Concomitant]
     Active Substance: OMEPRAZOLE
  4. AXIN-C [Concomitant]
  5. RIOPAN [Concomitant]
     Active Substance: MAGALDRATE
  6. AUBAGIO [Suspect]
     Active Substance: TERIFLUNOMIDE
     Indication: RELAPSING-REMITTING MULTIPLE SCLEROSIS
     Route: 048
     Dates: start: 20141230, end: 20150104
  7. SIVASTIN [Concomitant]
     Active Substance: SIMVASTATIN
     Dosage: STRENGTH: 10 MG
  8. AUBAGIO [Suspect]
     Active Substance: TERIFLUNOMIDE
     Indication: MULTIPLE SCLEROSIS
     Route: 048
     Dates: start: 20141230, end: 20150104
  9. DIDROGYL [Concomitant]

REACTIONS (2)
  - Herpes zoster [Unknown]
  - Pain [Unknown]

NARRATIVE: CASE EVENT DATE: 20150102
